FAERS Safety Report 7003317-X (Version None)
Quarter: 2010Q3

REPORT INFORMATION
  Report Type: 
  Country: None (occurrence: None)
  Receive Date: 20100920
  Receipt Date: 20100707
  Transmission Date: 20110219
  Serious: No
  Sender: FDA-Public Use
  Company Number: A0866571A

PATIENT
  Age: 47 Year
  Sex: Male
  Weight: 77.3 kg

DRUGS (4)
  1. LAMICTAL [Suspect]
     Dosage: 200MG PER DAY
     Route: 048
     Dates: start: 20090901
  2. PAROXETINE HCL [Suspect]
  3. ZOLPIDEM [Concomitant]
     Dosage: 10MG AT NIGHT
     Dates: start: 20090801
  4. CLONAZEPAM [Concomitant]
     Dosage: .6G FOUR TIMES PER DAY
     Dates: start: 20090801

REACTIONS (2)
  - DRUG INTOLERANCE [None]
  - SKIN REACTION [None]
